FAERS Safety Report 10613931 (Version 2)
Quarter: 2014Q4

REPORT INFORMATION
  Report Type: Spontaneous
  Country: US (occurrence: US)
  Receive Date: 20141128
  Receipt Date: 20141128
  Transmission Date: 20150529
  Serious: No
  Sender: FDA-Public Use
  Company Number: US-GLAXOSMITHKLINE-A1077092A

PATIENT

DRUGS (2)
  1. ESTROGEN [Concomitant]
     Active Substance: ESTRONE\SUS SCROFA OVARY
  2. WELLBUTRIN SR [Suspect]
     Active Substance: BUPROPION HYDROCHLORIDE
     Indication: DEPRESSION
     Route: 048
     Dates: start: 2013

REACTIONS (5)
  - Discomfort [Unknown]
  - Blood pressure increased [Unknown]
  - Product odour abnormal [None]
  - Product substitution issue [None]
  - Depression [Recovered/Resolved]

NARRATIVE: CASE EVENT DATE: 2013
